FAERS Safety Report 7080581 (Version 2)
Quarter: 2013Q3

REPORT INFORMATION
  Report Type: Spontaneous
  Country: US (occurrence: US)
  Receive Date: 20090813
  Receipt Date: 20130722
  Transmission Date: 20140515
  Serious: Yes (Hospitalization, Other)
  Sender: FDA-Public Use
  Company Number: US-ELI_LILLY_AND_COMPANY-US200908001939

PATIENT
  Sex: Female

DRUGS (8)
  1. HUMULIN NPH [Suspect]
     Indication: DIABETES MELLITUS
  2. HUMULIN REGULAR [Suspect]
     Indication: DIABETES MELLITUS
  3. TRIAMTERENE/HCTZ [Concomitant]
     Indication: HYPERTENSION
  4. ALPRAZOLAM [Concomitant]
  5. AMLODIPINE [Concomitant]
  6. ASPIRIN [Concomitant]
  7. METOPROLOL [Concomitant]
     Indication: HYPERTENSION
  8. LEVOTHYROXINE [Concomitant]

REACTIONS (9)
  - Cardiac disorder [Recovered/Resolved]
  - Fracture [Unknown]
  - Fall [Recovered/Resolved]
  - Rib fracture [Unknown]
  - Visual acuity reduced [Not Recovered/Not Resolved]
  - Diabetic retinopathy [Not Recovered/Not Resolved]
  - Hypertension [Not Recovered/Not Resolved]
  - Hypoacusis [Unknown]
  - Blood glucose decreased [Recovered/Resolved]
